FAERS Safety Report 7312199-8 (Version None)
Quarter: 2011Q1

REPORT INFORMATION
  Report Type: 
  Country: None (occurrence: None)
  Receive Date: 20110224
  Receipt Date: 20110217
  Transmission Date: 20110831
  Serious: Yes (Hospitalization)
  Sender: FDA-Public Use
  Company Number: A0892641A

PATIENT
  Age: 76 Year
  Sex: Male

DRUGS (1)
  1. AVANDIA [Suspect]
     Indication: DIABETES MELLITUS
     Dosage: 4MG PER DAY
     Route: 048
     Dates: start: 20050421, end: 20060401

REACTIONS (6)
  - CARDIOVASCULAR DISORDER [None]
  - TREMOR [None]
  - CARDIAC DISORDER [None]
  - PLEURAL EFFUSION [None]
  - PERICARDIAL EFFUSION [None]
  - PORTAL VEIN THROMBOSIS [None]
